FAERS Safety Report 7456335-1 (Version None)
Quarter: 2011Q2

REPORT INFORMATION
  Report Type: 
  Country: None (occurrence: None)
  Receive Date: 20110503
  Receipt Date: 20110413
  Transmission Date: 20111010
  Serious: Yes (Other)
  Sender: FDA-Public Use
  Company Number: US-BAXTER-2011BH010956

PATIENT
  Sex: Male

DRUGS (1)
  1. FACTOR VIII, UNSPECIFIED [Suspect]
     Indication: HAEMOPHILIA
     Route: 065

REACTIONS (3)
  - HAEMORRHAGE [None]
  - HEAD INJURY [None]
  - INJURY [None]
